FAERS Safety Report 7586805-7 (Version None)
Quarter: 2011Q3

REPORT INFORMATION
  Report Type: 
  Country: None (occurrence: None)
  Receive Date: 20110701
  Receipt Date: 20110620
  Transmission Date: 20111222
  Serious: Yes (Other)
  Sender: FDA-Public Use
  Company Number: PHHY2011DK55933

PATIENT
  Age: 2 Year
  Sex: Female

DRUGS (4)
  1. ATROPINE SULFATE [Suspect]
     Dosage: UNK
  2. CHLORAMPHENICOL [Suspect]
     Indication: CORNEAL OPACITY
     Dosage: UNK
  3. CIPROFLOXACIN [Suspect]
     Dosage: UNK
  4. OXYTETRACYCLINE/POLYMYXIN B [Suspect]

REACTIONS (8)
  - CORNEAL PERFORATION [None]
  - IRIS ADHESIONS [None]
  - ULCERATIVE KERATITIS [None]
  - IRITIS [None]
  - HYPOPYON [None]
  - DRUG INEFFECTIVE [None]
  - EYE INFECTION [None]
  - CORNEAL OEDEMA [None]
